FAERS Safety Report 6900707-8 (Version None)
Quarter: 2010Q3

REPORT INFORMATION
  Report Type: 
  Country: None (occurrence: None)
  Receive Date: 20100803
  Receipt Date: 20100722
  Transmission Date: 20110219
  Serious: Yes (Disabling, Other)
  Sender: FDA-Public Use
  Company Number: CA-ELI_LILLY_AND_COMPANY-CA201007006113

PATIENT
  Sex: Male

DRUGS (15)
  1. FORTEO [Suspect]
     Indication: OSTEOPOROSIS
     Dosage: 20 UG, DAILY (1/D)
     Dates: start: 20090513
  2. LIPITOR [Concomitant]
  3. VITALUX [Concomitant]
  4. COQ10 [Concomitant]
  5. BISOPROLOL [Concomitant]
  6. LASIX [Concomitant]
  7. SPIRONOLACTONE [Concomitant]
  8. CHLORTHALIDONE [Concomitant]
  9. COVERSIL [Concomitant]
  10. VITAMIN B-12 [Concomitant]
     Dosage: UNK, MONTHLY (1/M)
  11. CALTRATE [Concomitant]
  12. HYDROXYZINE [Concomitant]
  13. OMNARIS [Concomitant]
  14. VOLTAREN [Concomitant]
  15. HYDROCHLOROTHIAZIDE [Concomitant]

REACTIONS (1)
  - CARDIAC DISORDER [None]
